FAERS Safety Report 9453852 (Version 1)
Quarter: 2013Q3

REPORT INFORMATION
  Report Type: Spontaneous
  Country: US (occurrence: US)
  Receive Date: 20130812
  Receipt Date: 20130812
  Transmission Date: 20140515
  Serious: Yes (Other)
  Sender: FDA-Public Use
  Company Number: US-PFIZER INC-2013231740

PATIENT
  Sex: Female

DRUGS (1)
  1. CABERGOLINE [Suspect]
     Indication: PROLACTINOMA
     Dosage: 2.5 MG, 2X/WEEK

REACTIONS (3)
  - Impulse-control disorder [Recovering/Resolving]
  - Pathological gambling [Recovering/Resolving]
  - Eating disorder [Recovering/Resolving]
